FAERS Safety Report 5254099-3 (Version None)
Quarter: 2007Q1

REPORT INFORMATION
  Report Type: 
  Country: None (occurrence: None)
  Receive Date: 20070302
  Receipt Date: 20070222
  Transmission Date: 20070707
  Serious: Yes (Hospitalization)
  Sender: FDA-Public Use
  Company Number: BE-JNJFOC-20070205675

PATIENT
  Age: 55 Year
  Sex: Male
  Weight: 74 kg

DRUGS (5)
  1. REMICADE [Suspect]
     Route: 042
  2. REMICADE [Suspect]
     Route: 042
  3. REMICADE [Suspect]
     Indication: RHEUMATOID ARTHRITIS
     Route: 042
  4. METHOTREXATE [Concomitant]
     Indication: RHEUMATOID ARTHRITIS
     Route: 065
  5. FOLIC ACID [Concomitant]
     Indication: RHEUMATOID ARTHRITIS
     Route: 065

REACTIONS (6)
  - DISSEMINATED TUBERCULOSIS [None]
  - DUODENITIS [None]
  - GASTRITIS [None]
  - METAPLASIA [None]
  - PULMONARY TUBERCULOSIS [None]
  - REFLUX OESOPHAGITIS [None]
